FAERS Safety Report 4686773-1 (Version None)
Quarter: 2005Q2

REPORT INFORMATION
  Report Type: 
  Country: None (occurrence: None)
  Receive Date: 20050606
  Receipt Date: 20050519
  Transmission Date: 20051028
  Serious: Yes (Death)
  Sender: FDA-Public Use
  Company Number: EWC040639689

PATIENT
  Age: 76 Year
  Sex: Female

DRUGS (1)
  1. XIGRIS [Suspect]
     Indication: ABDOMINAL SEPSIS
     Dosage: 24 UG/KG/HR
     Dates: start: 20040609, end: 20040613

REACTIONS (8)
  - ACTIVATED PARTIAL THROMBOPLASTIN TIME PROLONGED [None]
  - CARDIO-RESPIRATORY ARREST [None]
  - GENERAL PHYSICAL HEALTH DETERIORATION [None]
  - HAEMOGLOBIN DECREASED [None]
  - HAEMORRHAGE [None]
  - INTERNATIONAL NORMALISED RATIO DECREASED [None]
  - MULTI-ORGAN FAILURE [None]
  - PLATELET COUNT DECREASED [None]
